FAERS Safety Report 19375553 (Version 1)
Quarter: 2021Q2

REPORT INFORMATION
  Report Type: Spontaneous
  Country: SE (occurrence: SE)
  Receive Date: 20210604
  Receipt Date: 20210604
  Transmission Date: 20210717
  Serious: Yes (Hospitalization)
  Sender: FDA-Public Use
  Company Number: SE-VERTEX PHARMACEUTICALS-2021-008343

PATIENT
  Age: 41 Year
  Sex: Female

DRUGS (2)
  1. ORKAMBI [Suspect]
     Active Substance: IVACAFTOR\LUMACAFTOR
     Indication: CYSTIC FIBROSIS
     Dosage: UNK
     Route: 048
     Dates: start: 2021
  2. WARAN [Concomitant]
     Active Substance: WARFARIN SODIUM

REACTIONS (2)
  - Condition aggravated [Unknown]
  - Superior vena cava syndrome [Unknown]

NARRATIVE: CASE EVENT DATE: 2021
